FAERS Safety Report 7219578-8 (Version None)
Quarter: 2011Q1

REPORT INFORMATION
  Report Type: 
  Country: None (occurrence: None)
  Receive Date: 20110111
  Receipt Date: 20110104
  Transmission Date: 20110831
  Serious: Yes (Other)
  Sender: FDA-Public Use
  Company Number: DE-PFIZER INC-2010178093

PATIENT
  Age: 64 Year
  Sex: Male
  Weight: 85.3 kg

DRUGS (13)
  1. ASPIRIN [Concomitant]
     Indication: CORONARY ARTERY DISEASE
     Dosage: 100 MG, 1X/DAY
     Route: 048
     Dates: start: 20030701
  2. MAGNESIUM VERLA N DRAGEES [Concomitant]
     Dosage: 200 MG, AS NEEDED
  3. TOLPERISONE HYDROCHLORIDE [Interacting]
     Indication: MUSCLE TIGHTNESS
     Dosage: SINGLE OCCASION, 2 DF OF 50 MG
     Route: 048
     Dates: start: 20101202, end: 20101202
  4. ASPIRIN [Concomitant]
     Indication: STENT PLACEMENT
  5. ASPIRIN [Concomitant]
     Indication: CORONARY ARTERY BYPASS
  6. TOLPERISONE HYDROCHLORIDE [Interacting]
     Indication: MUSCULOSKELETAL PAIN
  7. PLAVIX [Concomitant]
     Indication: STENT PLACEMENT
  8. LYRICA [Suspect]
     Indication: NEURALGIA
     Dosage: 300 MG, 2X/DAY
     Route: 048
     Dates: start: 20090901
  9. OLMETEC [Concomitant]
     Indication: CORONARY ARTERY DISEASE
  10. DILATREND [Concomitant]
     Dosage: 12.5 MG, 2X/DAY
  11. PLAVIX [Concomitant]
     Indication: CORONARY ARTERY DISEASE
     Dosage: 75 MG, 1X/DAY
     Route: 048
     Dates: start: 20030701
  12. PLAVIX [Concomitant]
     Indication: CORONARY ARTERY BYPASS
  13. OLMETEC [Concomitant]
     Indication: HYPERTENSION
     Dosage: 20 UNK, 1X/DAY
     Route: 048
     Dates: start: 20080601

REACTIONS (5)
  - DRUG INTERACTION [None]
  - RESPIRATORY DEPRESSION [None]
  - HYPERSOMNIA [None]
  - DEPRESSED LEVEL OF CONSCIOUSNESS [None]
  - DYSPNOEA [None]
